FAERS Safety Report 8727424 (Version 3)
Quarter: 2012Q4

REPORT INFORMATION
  Report Type: 
  Country: PT (occurrence: PT)
  Receive Date: 20120816
  Receipt Date: 20121129
  Transmission Date: 20130627
  Serious: Yes (Hospitalization, Other)
  Sender: FDA-Public Use
  Company Number: PT-BAYER-2011-115650

PATIENT
  Age: 43 Year
  Sex: Female

DRUGS (3)
  1. BETAFERON [Suspect]
     Indication: SECONDARY PROGRESSIVE MULTIPLE SCLEROSIS
     Dosage: QOD
     Route: 058
     Dates: start: 19960101
  2. PAROXETINE [Concomitant]
     Route: 048
  3. DITROPAN [Concomitant]
     Route: 048

REACTIONS (10)
  - Non-Hodgkin^s lymphoma [None]
  - Sepsis [Recovered/Resolved]
  - Pyrexia [Recovered/Resolved]
  - Chills [Recovered/Resolved]
  - Leukopenia [Recovered/Resolved]
  - Anaemia [Not Recovered/Not Resolved]
  - Pallor [Not Recovered/Not Resolved]
  - Injection site erythema [Recovering/Resolving]
  - Non-Hodgkin^s lymphoma [None]
  - Non-Hodgkin^s lymphoma [None]
